FAERS Safety Report 18267048 (Version 4)
Quarter: 2020Q4

REPORT INFORMATION
  Report Type: Spontaneous
  Country: CA (occurrence: CA)
  Receive Date: 20200915
  Receipt Date: 20201104
  Transmission Date: 20210113
  Serious: Yes (Other)
  Sender: FDA-Public Use
  Company Number: CA-PFIZER INC-2020239437

PATIENT
  Age: 6 Year
  Sex: Male
  Weight: 15.2 kg

DRUGS (2)
  1. GENOTROPIN [Suspect]
     Active Substance: SOMATROPIN
     Indication: SMALL FOR DATES BABY
     Dosage: 0.6MG/DAY, 6 TIMES A WEEK
     Route: 058
     Dates: start: 20201022
  2. GENOTROPIN [Suspect]
     Active Substance: SOMATROPIN
     Indication: SHORT STATURE
     Dosage: 0.8 MG/DAY, 6 DAYS/WEEK
     Route: 058
     Dates: start: 20190903

REACTIONS (5)
  - Stress [Unknown]
  - Idiopathic intracranial hypertension [Unknown]
  - Hypotension [Unknown]
  - Headache [Recovered/Resolved]
  - Nausea [Recovered/Resolved]
